FAERS Safety Report 6556517-7 (Version None)
Quarter: 2010Q1

REPORT INFORMATION
  Report Type: 
  Country: None (occurrence: None)
  Receive Date: 20100128
  Receipt Date: 20100119
  Transmission Date: 20100710
  Serious: Yes (Hospitalization)
  Sender: FDA-Public Use
  Company Number: US-MERCK-1001USA00995

PATIENT
  Age: 62 Year
  Sex: Female

DRUGS (6)
  1. JANUMET [Suspect]
     Indication: TYPE 2 DIABETES MELLITUS
     Route: 048
     Dates: start: 20090101, end: 20100101
  2. HYZAAR [Concomitant]
     Route: 048
  3. AMARYL [Concomitant]
     Route: 065
  4. CRESTOR [Concomitant]
     Route: 065
  5. ISORDIL [Concomitant]
     Route: 065
  6. OXYCODONE [Concomitant]
     Route: 065

REACTIONS (2)
  - PANCREATIC CYST [None]
  - PANCREATITIS [None]
